FAERS Safety Report 12849302 (Version 2)
Quarter: 2016Q4

REPORT INFORMATION
  Report Type: Spontaneous
  Country: US (occurrence: US)
  Receive Date: 20161014
  Receipt Date: 20161028
  Transmission Date: 20170207
  Serious: No
  Sender: FDA-Public Use
  Company Number: US-SMITH AND NEPHEW, INC-2016SMT00768

PATIENT
  Sex: Female
  Weight: 108.84 kg

DRUGS (8)
  1. IBUPROFEN. [Concomitant]
     Active Substance: IBUPROFEN
  2. TYLENOL [Concomitant]
     Active Substance: ACETAMINOPHEN
  3. METHADONE [Concomitant]
     Active Substance: METHADONE HYDROCHLORIDE
     Dosage: UNK, 1X/DAY
  4. VANCOMYCIN [Concomitant]
     Active Substance: VANCOMYCIN
     Dosage: UNK, 2X/DAY
     Route: 042
     Dates: start: 2016
  5. FLAGYL [Concomitant]
     Active Substance: METRONIDAZOLE\METRONIDAZOLE HYDROCHLORIDE
     Dosage: UNK, 3X/DAY
     Route: 048
  6. UNSPECIFIED INTRAVENOUS ANTIBIOTIC [Concomitant]
     Dosage: UNK
     Route: 048
  7. AUSTRAMYCIN [Concomitant]
     Dosage: UNK UNK, 3X/DAY
     Route: 042
  8. REGRANEX [Suspect]
     Active Substance: BECAPLERMIN
     Indication: WOUND
     Dosage: UNK UNK, 1X/DAY
     Route: 061
     Dates: start: 2016

REACTIONS (3)
  - Skin tightness [Not Recovered/Not Resolved]
  - Application site pain [Not Recovered/Not Resolved]
  - Wound secretion [Recovered/Resolved]

NARRATIVE: CASE EVENT DATE: 2016
